FAERS Safety Report 9094154 (Version 4)
Quarter: 2013Q1

REPORT INFORMATION
  Report Type: Spontaneous
  Country: US (occurrence: None)
  Receive Date: 20130122
  Receipt Date: 20130325
  Transmission Date: 20140127
  Serious: Yes (Disabling, Other)
  Sender: FDA-Public Use
  Company Number: ACO_33806_2013

PATIENT
  Sex: Female
  Weight: 56.7 kg

DRUGS (8)
  1. AMPYRA [Suspect]
     Indication: GAIT DISTURBANCE
     Route: 048
     Dates: start: 20100604, end: 201212
  2. CORTICOSTEROIDS [Concomitant]
     Indication: MULTIPLE SCLEROSIS
     Route: 042
  3. BACLOFEN (BACLOFEN) [Concomitant]
  4. NUVIGIL (ARMODAFINIL) [Concomitant]
  5. TYSABRI (NATALIZUMAB) [Concomitant]
  6. ZANAFLEX (TIZANIDINE HYDROCHLORIDE) [Concomitant]
  7. VESICARE (SOLIFENACIN SUCCINATE) [Concomitant]
  8. LORATIDINE [Concomitant]

REACTIONS (5)
  - Abasia [None]
  - Dysstasia [None]
  - Muscle spasms [None]
  - Arthropathy [None]
  - Fall [None]
